FAERS Safety Report 14701260 (Version 1)
Quarter: 2018Q1

REPORT INFORMATION
  Report Type: Spontaneous
  Country: US (occurrence: US)
  Receive Date: 20180328
  Receipt Date: 20180328
  Transmission Date: 20180509
  Serious: No
  Sender: FDA-Public Use
  Company Number: None

PATIENT
  Age: 56 Year
  Sex: Female
  Weight: 84 kg

DRUGS (1)
  1. MORPHINE [Suspect]
     Active Substance: MORPHINE
     Indication: PAIN
     Dates: start: 20180119, end: 20180123

REACTIONS (6)
  - Pruritus [None]
  - Swelling face [None]
  - Rash [None]
  - Nausea [None]
  - Burning sensation [None]
  - Vomiting [None]

NARRATIVE: CASE EVENT DATE: 20180121
